FAERS Safety Report 16993286 (Version 1)
Quarter: 2019Q4

REPORT INFORMATION
  Report Type: Spontaneous
  Country: US (occurrence: US)
  Receive Date: 20190923
  Receipt Date: 20190923
  Transmission Date: 20200122
  Serious: No
  Sender: FDA-Public Use
  Company Number: None

PATIENT
  Age: 63 Year
  Sex: Female

DRUGS (8)
  1. CALCIUM-MAGNESIUM [Concomitant]
     Active Substance: CALCIUM\MAGNESIUM
  2. DALFAMPRIDINE ER 10MG [Suspect]
     Active Substance: DALFAMPRIDINE
     Indication: MULTIPLE SCLEROSIS
     Route: 048
     Dates: start: 201901
  3. VESICARE [Suspect]
     Active Substance: SOLIFENACIN SUCCINATE
  4. LOSARTAN. [Concomitant]
     Active Substance: LOSARTAN
  5. AUBAGIO [Concomitant]
     Active Substance: TERIFLUNOMIDE
  6. PROTONIX [Concomitant]
     Active Substance: PANTOPRAZOLE SODIUM
  7. SYNTHROID [Concomitant]
     Active Substance: LEVOTHYROXINE SODIUM
  8. FOSAMAX [Concomitant]
     Active Substance: ALENDRONATE SODIUM

REACTIONS (2)
  - Gait disturbance [None]
  - Fall [None]

NARRATIVE: CASE EVENT DATE: 20190611
